FAERS Safety Report 23300214 (Version 1)
Quarter: 2023Q4

REPORT INFORMATION
  Report Type: Other
  Country: FR (occurrence: FR)
  Receive Date: 20231215
  Receipt Date: 20231215
  Transmission Date: 20240110
  Serious: Yes (Death, Hospitalization)
  Sender: FDA-Public Use
  Company Number: None

PATIENT

DRUGS (10)
  1. ATORVASTATIN [Interacting]
     Active Substance: ATORVASTATIN
     Indication: Prophylaxis
     Dosage: 20 MILLIGRAM, QD
     Route: 048
  2. COLCHICINE [Interacting]
     Active Substance: COLCHICINE
     Indication: Gouty arthritis
     Dosage: 0.5 MILLIGRAM, QD
     Route: 048
     Dates: start: 20230820
  3. COVERAM [Concomitant]
     Active Substance: AMLODIPINE\PERINDOPRIL
     Indication: Hypertension
     Dosage: 1 DOSAGE FORM, QD
     Route: 048
  4. ELIQUIS [Concomitant]
     Active Substance: APIXABAN
     Indication: Atrial fibrillation
     Dosage: 1 DOSAGE FORM, BID
     Route: 048
  5. DAPAGLIFLOZIN [Concomitant]
     Active Substance: DAPAGLIFLOZIN
     Indication: Insulin-requiring type 2 diabetes mellitus
     Dosage: LE MATIN
     Route: 048
  6. FUROSEMIDE [Concomitant]
     Active Substance: FUROSEMIDE
     Indication: Cardiac failure
     Dosage: 120 MILLIGRAM, QD
     Route: 048
  7. LANTUS [Concomitant]
     Active Substance: INSULIN GLARGINE
     Indication: Insulin-requiring type 2 diabetes mellitus
     Dosage: 34 INTERNATIONAL UNIT, QD
     Route: 058
  8. NEBIVOLOL [Concomitant]
     Active Substance: NEBIVOLOL
     Indication: Hypertension
     Dosage: 2.5 MILLIGRAM, QD
     Route: 048
  9. RILMENIDINE [Concomitant]
     Active Substance: RILMENIDINE
     Indication: Hypertension
     Dosage: 2 MILLIGRAM, BID
     Route: 048
  10. CHOLECALCIFEROL [Concomitant]
     Active Substance: CHOLECALCIFEROL
     Indication: Vitamin supplementation
     Dosage: 1 DOSAGE FORM, PER 1 MONTH
     Route: 048

REACTIONS (5)
  - Metabolic acidosis [Fatal]
  - Drug interaction [Fatal]
  - Diarrhoea [Unknown]
  - Vomiting [Unknown]
  - Overdose [Fatal]

NARRATIVE: CASE EVENT DATE: 20231010
